FAERS Safety Report 19302621 (Version 2)
Quarter: 2021Q3

REPORT INFORMATION
  Report Type: Report from Study
  Country: US (occurrence: US)
  Receive Date: 20210525
  Receipt Date: 20210709
  Transmission Date: 20211014
  Serious: No
  Sender: FDA-Public Use
  Company Number: NVSC2021US114353

PATIENT
  Sex: Female

DRUGS (1)
  1. COSENTYX [Suspect]
     Active Substance: SECUKINUMAB
     Indication: PSORIATIC ARTHROPATHY
     Dosage: 300 MG, QMO (EVERY 25TH OF MONTH)
     Route: 065

REACTIONS (6)
  - Visual impairment [Unknown]
  - Gait disturbance [Unknown]
  - Pain [Unknown]
  - Dyspepsia [Unknown]
  - Tendon rupture [Unknown]
  - Ligament rupture [Unknown]
